FAERS Safety Report 17689273 (Version 1)
Quarter: 2020Q2

REPORT INFORMATION
  Report Type: Report from Study
  Country: FR (occurrence: FR)
  Receive Date: 20200421
  Receipt Date: 20200421
  Transmission Date: 20200714
  Serious: Yes (Other)
  Sender: FDA-Public Use
  Company Number: FR-JNJFOC-20200414129

PATIENT

DRUGS (2)
  1. STELARA [Suspect]
     Active Substance: USTEKINUMAB
     Indication: CROHN^S DISEASE
     Dosage: 90 MG EVERY 8 WEEKS OR 12 WEEKS.
     Route: 058
  2. STELARA [Suspect]
     Active Substance: USTEKINUMAB
     Dosage: WEEK 0
     Route: 042

REACTIONS (17)
  - Cerebrovascular accident [Unknown]
  - Vertigo [Unknown]
  - Headache [Unknown]
  - Sinusitis [Unknown]
  - Drug intolerance [Unknown]
  - Urinary tract infection [Unknown]
  - Infection [Unknown]
  - Arthralgia [Unknown]
  - Haematology test abnormal [Unknown]
  - Gastrointestinal infection [Unknown]
  - Influenza [Unknown]
  - Herpes zoster [Unknown]
  - Lung disorder [Unknown]
  - Rash [Unknown]
  - Upper respiratory tract infection [Unknown]
  - Paraesthesia [Unknown]
  - Oral infection [Unknown]
